FAERS Safety Report 23020569 (Version 1)
Quarter: 2023Q4

REPORT INFORMATION
  Report Type: Spontaneous
  Country: US (occurrence: None)
  Receive Date: 20231003
  Receipt Date: 20231003
  Transmission Date: 20240110
  Serious: Yes (Hospitalization)
  Sender: FDA-Public Use
  Company Number: None

PATIENT
  Sex: Male
  Weight: 56 kg

DRUGS (4)
  1. FLUOROURACIL [Suspect]
     Active Substance: FLUOROURACIL
  2. CAMPTOSAR [Concomitant]
     Active Substance: IRINOTECAN HYDROCHLORIDE
  3. LEUCOVORIN CALCIUM [Concomitant]
  4. ELOXATIN [Concomitant]
     Active Substance: OXALIPLATIN

REACTIONS (10)
  - Proctalgia [None]
  - Dyschezia [None]
  - Haemorrhoids thrombosed [None]
  - Anal fissure [None]
  - Intra-abdominal fluid collection [None]
  - Rectal abscess [None]
  - Rectal examination [None]
  - Procedural complication [None]
  - Biliary dilatation [None]
  - Hypertransaminasaemia [None]

NARRATIVE: CASE EVENT DATE: 20230809
